FAERS Safety Report 7363054-9 (Version None)
Quarter: 2011Q1

REPORT INFORMATION
  Report Type: 
  Country: None (occurrence: None)
  Receive Date: 20110321
  Receipt Date: 20110311
  Transmission Date: 20110831
  Serious: Yes (Other)
  Sender: FDA-Public Use
  Company Number: US-PFIZER INC-2006059462

PATIENT
  Sex: Female

DRUGS (11)
  1. NEURONTIN [Suspect]
     Dosage: 100 MG
     Dates: start: 20010308
  2. NEURONTIN [Suspect]
     Dosage: 300 MG, IN EVENING
     Dates: start: 20040624
  3. GABAPENTIN [Suspect]
     Dosage: UNK
     Dates: start: 19980201
  4. NEURONTIN [Suspect]
     Dosage: UNK
     Dates: start: 20010502
  5. NEURONTIN [Suspect]
     Dosage: 100 MG, OCCASIONALLY
     Dates: start: 20011004
  6. GABAPENTIN [Suspect]
     Dosage: UNK
     Dates: start: 19980611
  7. NEURONTIN [Suspect]
     Indication: ILL-DEFINED DISORDER
     Dosage: UNK
     Dates: start: 19980201, end: 20040626
  8. NEURONTIN [Suspect]
     Dosage: AT LEAST 200 TO 300 MG PER DAY
     Dates: start: 20030616
  9. NEURONTIN [Suspect]
     Dosage: 100 MG, 3X/DAY
     Dates: start: 20031027
  10. NEURONTIN [Suspect]
     Dosage: 300 MG, 1X/DAY
     Dates: start: 20031222
  11. NEURONTIN [Suspect]
     Dosage: 100 MG, AS NEEDED
     Dates: start: 20020624

REACTIONS (3)
  - SUICIDAL IDEATION [None]
  - SUICIDE ATTEMPT [None]
  - DEPRESSION [None]
